FAERS Safety Report 4351694-0 (Version None)
Quarter: 2004Q2

REPORT INFORMATION
  Report Type: 
  Country: None (occurrence: None)
  Receive Date: 20040503
  Receipt Date: 20040423
  Transmission Date: 20050107
  Serious: Yes (Hospitalization, Other)
  Sender: FDA-Public Use
  Company Number: US-BRISTOL-MYERS SQUIBB COMPANY-12568168

PATIENT
  Age: 54 Year
  Sex: Female

DRUGS (17)
  1. CARBOPLATIN [Suspect]
     Indication: OVARIAN CANCER
     Route: 042
     Dates: start: 20031024, end: 20031024
  2. PACLITAXEL [Suspect]
     Indication: OVARIAN CANCER
     Route: 042
     Dates: start: 20031024, end: 20031024
  3. DECADRON [Concomitant]
     Indication: PREMEDICATION
     Dates: start: 20031023, end: 20031024
  4. BENADRYL [Concomitant]
     Indication: PREMEDICATION
     Dates: start: 20031024, end: 20031024
  5. ZANTAC [Concomitant]
     Indication: PREMEDICATION
     Dates: start: 20031024, end: 20031024
  6. ATIVAN [Concomitant]
     Dates: start: 20031024, end: 20031024
  7. KYTRIL [Concomitant]
     Dates: start: 20031024, end: 20031024
  8. LORAZEPAM [Concomitant]
     Dates: start: 20000101
  9. PROZAC [Concomitant]
     Dates: start: 20030920
  10. CIPRO [Concomitant]
     Dates: start: 20031017, end: 20031024
  11. PYRIDIUM [Concomitant]
     Dates: start: 20031023
  12. TYLENOL (CAPLET) [Concomitant]
     Dates: start: 20031017
  13. CALCIUM [Concomitant]
     Dates: start: 20030201
  14. MULTIVITAMIN [Concomitant]
     Dates: start: 20030101
  15. MAGNESIUM [Concomitant]
     Dates: start: 20031023
  16. COMPAZINE [Concomitant]
     Dates: start: 20031025
  17. ANAPROX [Concomitant]
     Dates: start: 20031025

REACTIONS (2)
  - DEHYDRATION [None]
  - FAECALOMA [None]
